FAERS Safety Report 11438397 (Version 1)
Quarter: 2015Q3

REPORT INFORMATION
  Report Type: Spontaneous
  Country: US (occurrence: US)
  Receive Date: 20150901
  Receipt Date: 20150901
  Transmission Date: 20151125
  Serious: No
  Sender: FDA-Public Use
  Company Number: US-ROCHE-1173387

PATIENT
  Sex: Female

DRUGS (2)
  1. RIBASPHERE [Concomitant]
     Active Substance: RIBAVIRIN
     Indication: CHRONIC HEPATITIS C
     Route: 048
     Dates: start: 20121129
  2. PEGASYS [Suspect]
     Active Substance: PEGINTERFERON ALFA-2A
     Indication: CHRONIC HEPATITIS C
     Route: 058
     Dates: start: 20121129

REACTIONS (6)
  - Decreased appetite [Unknown]
  - Fear of injection [Unknown]
  - Dyspnoea [Unknown]
  - Tearfulness [Unknown]
  - Fatigue [Unknown]
  - Influenza like illness [Unknown]
